FAERS Safety Report 25213633 (Version 2)
Quarter: 2025Q2

REPORT INFORMATION
  Report Type: Spontaneous
  Country: DE (occurrence: DE)
  Receive Date: 20250418
  Receipt Date: 20250428
  Transmission Date: 20250717
  Serious: Yes (Other)
  Sender: MERCK SHARP & DOHME LLC
  Company Number: DE-009507513-2276676

PATIENT
  Sex: Male

DRUGS (1)
  1. KEYTRUDA [Suspect]
     Active Substance: PEMBROLIZUMAB
     Indication: Colon cancer metastatic
     Route: 065
     Dates: start: 2024

REACTIONS (3)
  - Cerebral infarction [Unknown]
  - Venous thrombosis [Unknown]
  - Endocarditis [Unknown]

NARRATIVE: CASE EVENT DATE: 20250404
